FAERS Safety Report 6704098-7 (Version None)
Quarter: 2010Q2

REPORT INFORMATION
  Report Type: 
  Country: None (occurrence: None)
  Receive Date: 20100423
  Receipt Date: 20100215
  Transmission Date: 20101027
  Serious: No
  Sender: FDA-Public Use
  Company Number: ALL1-2010-00885

PATIENT
  Age: 7 Year
  Sex: Male
  Weight: 23.6 kg

DRUGS (1)
  1. VYVANSE [Suspect]
     Indication: ATTENTION DEFICIT/HYPERACTIVITY DISORDER
     Dosage: 70 MG, 1X/DAY:QD, ORAL
     Route: 048
     Dates: start: 20080101

REACTIONS (6)
  - ABNORMAL LOSS OF WEIGHT [None]
  - DECREASED APPETITE [None]
  - HALLUCINATION, AUDITORY [None]
  - INSOMNIA [None]
  - MOOD ALTERED [None]
  - SUPRAVENTRICULAR TACHYCARDIA [None]
